FAERS Safety Report 18815345 (Version 1)
Quarter: 2021Q1

REPORT INFORMATION
  Report Type: Spontaneous
  Country: US (occurrence: US)
  Receive Date: 20210130
  Receipt Date: 20210130
  Transmission Date: 20210419
  Serious: Yes (Disabling)
  Sender: FDA-Public Use
  Company Number: None

PATIENT
  Age: 71 Year
  Sex: Female
  Weight: 50.4 kg

DRUGS (3)
  1. CLONAZEPAM 0.5 MG [Suspect]
     Active Substance: CLONAZEPAM
     Indication: ANXIETY
     Dosage: QUANTITY:60 TABLET(S);?
     Route: 048
     Dates: start: 20180630, end: 20201217
  2. CLONAZEPAM 0.5MG [Concomitant]
     Active Substance: CLONAZEPAM
  3. MULTI VITAMINS [Concomitant]
     Active Substance: VITAMINS

REACTIONS (5)
  - Abdominal pain upper [None]
  - Headache [None]
  - Paraesthesia [None]
  - Skin burning sensation [None]
  - Illness [None]

NARRATIVE: CASE EVENT DATE: 20201216
